FAERS Safety Report 13771581 (Version 2)
Quarter: 2017Q3

REPORT INFORMATION
  Report Type: Spontaneous
  Country: US (occurrence: US)
  Receive Date: 20170720
  Receipt Date: 20170821
  Transmission Date: 20171127
  Serious: No
  Sender: FDA-Public Use
  Company Number: US-PFIZER INC-2017259026

PATIENT
  Sex: Female

DRUGS (2)
  1. XELJANZ XR [Suspect]
     Active Substance: TOFACITINIB CITRATE
     Indication: RHEUMATOID ARTHRITIS
     Dosage: 11 MG, DAILY
  2. XELJANZ XR [Suspect]
     Active Substance: TOFACITINIB CITRATE
     Indication: MIXED CONNECTIVE TISSUE DISEASE

REACTIONS (11)
  - Joint stiffness [Unknown]
  - Musculoskeletal stiffness [Unknown]
  - Headache [Unknown]
  - Insomnia [Unknown]
  - Tenderness [Unknown]
  - Musculoskeletal discomfort [Unknown]
  - Nausea [Unknown]
  - Pain [Unknown]
  - Pain in extremity [Unknown]
  - Joint swelling [Unknown]
  - Arthralgia [Unknown]
